FAERS Safety Report 7303335-8 (Version None)
Quarter: 2011Q1

REPORT INFORMATION
  Report Type: 
  Country: None (occurrence: None)
  Receive Date: 20110221
  Receipt Date: 20110210
  Transmission Date: 20110831
  Serious: Yes (Death, Other)
  Sender: FDA-Public Use
  Company Number: GB-MPIJNJ-2010-06329

PATIENT

DRUGS (3)
  1. VELCADE [Suspect]
     Indication: MULTIPLE MYELOMA
     Dosage: UNK
     Dates: start: 20100727
  2. PREDNISOLONE [Concomitant]
  3. MELPHALAN [Concomitant]

REACTIONS (4)
  - HEPATITIS CHOLESTATIC [None]
  - NEUTROPENIC SEPSIS [None]
  - HEPATIC FAILURE [None]
  - MULTIPLE MYELOMA [None]
